FAERS Safety Report 7645087-8 (Version None)
Quarter: 2011Q3

REPORT INFORMATION
  Report Type: 
  Country: None (occurrence: None)
  Receive Date: 20110729
  Receipt Date: 20110722
  Transmission Date: 20111222
  Serious: Yes (Other)
  Sender: FDA-Public Use
  Company Number: PHEH2010US03486

PATIENT
  Sex: Male

DRUGS (40)
  1. ZELNORM [Suspect]
     Indication: GASTRIC DISORDER
  2. SINGULAIR [Concomitant]
  3. LEVOTHYROXINE SODIUM [Concomitant]
  4. POTASSIUM CHLORIDE [Concomitant]
  5. VYTORIN [Concomitant]
  6. PEPCID [Concomitant]
  7. THEOPHYLLINE [Concomitant]
  8. FUROSEMIDE [Concomitant]
  9. LYRICA [Concomitant]
  10. HYOSCYAMINE [Concomitant]
  11. ALTACE [Concomitant]
  12. COZAAR [Concomitant]
  13. HYDRALAZINE HCL [Concomitant]
  14. NORVASC [Concomitant]
  15. FLOMAX [Concomitant]
  16. SPIRONOLACTONE [Concomitant]
  17. HYGROTON [Concomitant]
  18. ANAPROX [Concomitant]
  19. CAPTOPRIL [Concomitant]
  20. NOVOLOG [Concomitant]
  21. ZEGERID [Concomitant]
  22. LANOXIN [Concomitant]
  23. ULTRAM [Concomitant]
  24. REGLAN [Concomitant]
  25. ESGIC [Concomitant]
  26. HUMULIN R [Concomitant]
  27. ZETIA [Concomitant]
  28. ZYRTEC [Concomitant]
  29. BUMETANIDE [Concomitant]
  30. AMARYL [Concomitant]
  31. AXID [Concomitant]
  32. NEURONTIN [Concomitant]
  33. ARTHROTEC [Concomitant]
  34. ATENOLOL [Concomitant]
  35. GUAIFENESIN [Concomitant]
  36. ALLOPURINOL [Concomitant]
  37. ACCOLATE [Concomitant]
  38. TRICOR [Concomitant]
  39. ZANTAC [Concomitant]
  40. HUMULIN L                               /CAN/ [Concomitant]

REACTIONS (35)
  - INTERVERTEBRAL DISC PROTRUSION [None]
  - BACK PAIN [None]
  - ORTHOPNOEA [None]
  - CHEST PAIN [None]
  - SINUSITIS [None]
  - ARTERIOSCLEROSIS [None]
  - ANXIETY [None]
  - OBESITY [None]
  - HYDRONEPHROSIS [None]
  - DISABILITY [None]
  - DECREASED INTEREST [None]
  - ORTHOSTATIC HYPOTENSION [None]
  - DIZZINESS [None]
  - DYSPNOEA [None]
  - ABDOMINAL DISTENSION [None]
  - HYPOKALAEMIA [None]
  - OEDEMA PERIPHERAL [None]
  - RETINAL HAEMORRHAGE [None]
  - RESTRICTIVE PULMONARY DISEASE [None]
  - OTITIS MEDIA [None]
  - MYOCARDIAL INFARCTION [None]
  - PAIN [None]
  - ASCITES [None]
  - NEPHROLITHIASIS [None]
  - IRRITABLE BOWEL SYNDROME [None]
  - CARDIAC DISORDER [None]
  - CONSTIPATION [None]
  - INJURY [None]
  - VERTIGO [None]
  - FACET JOINT SYNDROME [None]
  - IMPAIRED GASTRIC EMPTYING [None]
  - PULMONARY OEDEMA [None]
  - CARDIOMYOPATHY [None]
  - CARPAL TUNNEL SYNDROME [None]
  - TONSILLAR HYPERTROPHY [None]
